FAERS Safety Report 8308635 (Version 8)
Quarter: 2013Q1

REPORT INFORMATION
  Report Type: Spontaneous
  Country: DK (occurrence: DK)
  Receive Date: 20111222
  Receipt Date: 20130328
  Transmission Date: 20140127
  Serious: Yes (Hospitalization, Other)
  Sender: FDA-Public Use
  Company Number: PHHY2011DK109815

PATIENT
  Age: 45 Year
  Sex: Female

DRUGS (1)
  1. GILENYA [Suspect]
     Indication: MULTIPLE SCLEROSIS
     Dosage: 0.5 MG, QD
     Route: 048
     Dates: start: 20111206, end: 20111215

REACTIONS (9)
  - Status epilepticus [Recovered/Resolved]
  - Confusional state [Recovering/Resolving]
  - Convulsion [Recovered/Resolved]
  - Nuclear magnetic resonance imaging brain abnormal [Recovering/Resolving]
  - Electroencephalogram abnormal [Recovering/Resolving]
  - Partial seizures [Recovered/Resolved]
  - Memory impairment [Not Recovered/Not Resolved]
  - Disturbance in attention [Recovering/Resolving]
  - Mental disorder [Recovering/Resolving]
